FAERS Safety Report 24585243 (Version 2)
Quarter: 2024Q4

REPORT INFORMATION
  Report Type: Spontaneous
  Country: US (occurrence: US)
  Receive Date: 20241106
  Receipt Date: 20241111
  Transmission Date: 20250114
  Serious: No
  Sender: PFIZER
  Company Number: US-PFIZER INC-202400293653

PATIENT
  Age: 66 Year
  Sex: Male

DRUGS (1)
  1. CIBINQO [Suspect]
     Active Substance: ABROCITINIB
     Indication: Eczema
     Dosage: UNK
     Dates: start: 2024

REACTIONS (3)
  - Therapeutic product effect incomplete [Unknown]
  - Acne [Unknown]
  - Skin disorder [Unknown]

NARRATIVE: CASE EVENT DATE: 20240101
